FAERS Safety Report 16471547 (Version 2)
Quarter: 2020Q1

REPORT INFORMATION
  Report Type: Spontaneous
  Country: JP (occurrence: JP)
  Receive Date: 20190624
  Receipt Date: 20200227
  Transmission Date: 20200409
  Serious: Yes (Other)
  Sender: FDA-Public Use
  Company Number: JP-BRISTOL-MYERS SQUIBB COMPANY-BMS-2019-059282

PATIENT
  Age: 65 Year
  Sex: Male

DRUGS (1)
  1. ELIQUIS [Suspect]
     Active Substance: APIXABAN
     Indication: PRODUCT USED FOR UNKNOWN INDICATION
     Dosage: 10 MILLIGRAM, ONE DAY (FREQUENCY UNKNOWN)
     Route: 065

REACTIONS (3)
  - Subarachnoid haemorrhage [Unknown]
  - Brain contusion [Unknown]
  - Subdural haemorrhage [Unknown]
